FAERS Safety Report 11799128 (Version 1)
Quarter: 2015Q4

REPORT INFORMATION
  Report Type: Report from Study
  Country: US (occurrence: US)
  Receive Date: 20151203
  Receipt Date: 20151203
  Transmission Date: 20160305
  Serious: No
  Sender: FDA-Public Use
  Company Number: US-AMGEN-USASL2015112661

PATIENT
  Age: 59 Year
  Sex: Female

DRUGS (1)
  1. REPATHA [Suspect]
     Active Substance: EVOLOCUMAB
     Indication: PRODUCT USED FOR UNKNOWN INDICATION
     Dosage: 140 MG, Q2WK
     Route: 065
     Dates: start: 201510

REACTIONS (8)
  - Injection site pain [Unknown]
  - Rhinorrhoea [Not Recovered/Not Resolved]
  - Asthma [Unknown]
  - Upper-airway cough syndrome [Not Recovered/Not Resolved]
  - Bronchitis [Unknown]
  - Sinus congestion [Unknown]
  - Dyspnoea [Unknown]
  - Cough [Unknown]

NARRATIVE: CASE EVENT DATE: 201510
